FAERS Safety Report 9820147 (Version 1)
Quarter: 2014Q1

REPORT INFORMATION
  Report Type: Spontaneous
  Country: US (occurrence: None)
  Receive Date: 20140113
  Receipt Date: 20140113
  Transmission Date: 20141002
  Serious: Yes (Other)
  Sender: FDA-Public Use
  Company Number: None

PATIENT
  Age: 54 Year
  Sex: Female
  Weight: 142.88 kg

DRUGS (1)
  1. CIPRO [Suspect]
     Indication: DIVERTICULITIS
     Dosage: 1 PILL RWICE DAILY
     Route: 048
     Dates: start: 20131231, end: 20140109

REACTIONS (4)
  - Arthralgia [None]
  - Abnormal dreams [None]
  - Night sweats [None]
  - Musculoskeletal stiffness [None]
